FAERS Safety Report 7109254-4 (Version None)
Quarter: 2010Q4

REPORT INFORMATION
  Report Type: 
  Country: None (occurrence: None)
  Receive Date: 20101117
  Receipt Date: 20081104
  Transmission Date: 20110411
  Serious: Yes (Other)
  Sender: FDA-Public Use
  Company Number: FI-GENENTECH-309726

PATIENT
  Age: 75 Year
  Sex: Male

DRUGS (5)
  1. MABTHERA [Suspect]
     Indication: LYMPHOMA
     Dosage: UNK
     Route: 065
     Dates: start: 20070101
  2. CYCLOPHOSPHAMIDE [Concomitant]
     Indication: LYMPHOMA
     Dosage: UNK
     Dates: start: 20070101
  3. DOXORUBICIN HCL [Concomitant]
     Indication: LYMPHOMA
     Dosage: UNK
     Dates: start: 20070101
  4. VINCRISTINE [Concomitant]
     Indication: LYMPHOMA
     Dosage: UNK
     Dates: start: 20070101
  5. PREDNISONE [Concomitant]
     Indication: LYMPHOMA
     Dosage: UNK
     Dates: start: 20070101

REACTIONS (1)
  - DISEASE RECURRENCE [None]
